FAERS Safety Report 10049383 (Version 1)
Quarter: 2014Q2

REPORT INFORMATION
  Report Type: Spontaneous
  Country: GB (occurrence: GB)
  Receive Date: 20140401
  Receipt Date: 20140401
  Transmission Date: 20141212
  Serious: Yes (Other)
  Sender: FDA-Public Use
  Company Number: GB-ASTRAZENECA-2014SE20312

PATIENT
  Age: 59 Year
  Sex: Male
  Weight: 65 kg

DRUGS (34)
  1. BRILIQUE [Suspect]
     Route: 048
     Dates: start: 20140128, end: 20140214
  2. ADRENALIN [Concomitant]
  3. AMOXICILLIN [Concomitant]
  4. AMPHOTERICIN B [Concomitant]
  5. ASPIRIN [Concomitant]
  6. ATORVASTATIN [Concomitant]
  7. ATRACURIUM [Concomitant]
  8. CALCIUM CHLORIDE [Concomitant]
  9. CANDESARTAN [Concomitant]
  10. CITALOPRAM [Concomitant]
  11. CLINDAMYCIN [Concomitant]
  12. CODEINE [Concomitant]
  13. CYCLIZINE [Concomitant]
  14. ENOXAPARIN [Concomitant]
  15. ERYTHROMYCIN [Concomitant]
  16. FLUCLOXACILLIN [Concomitant]
  17. FUROSEMIDE [Concomitant]
  18. GENTAMICIN [Concomitant]
  19. GLYCOPYRROLATE [Concomitant]
  20. INSULIN GLARGINE [Concomitant]
  21. KETAMINE [Concomitant]
  22. MEROPENEM [Concomitant]
  23. METARAMINOL [Concomitant]
  24. METOCLOPRAMIDE [Concomitant]
  25. NOVORAPID [Concomitant]
  26. NYSTATIN [Concomitant]
  27. OMEPRAZOLE [Concomitant]
  28. ONDANSETRON [Concomitant]
  29. PARACETAMOL [Concomitant]
  30. PROPOFOL [Concomitant]
  31. RANITIDINE [Concomitant]
  32. SODIUM BICARBONATE [Concomitant]
  33. TAZOCIN [Concomitant]
  34. VANCOMYCIN [Concomitant]

REACTIONS (2)
  - Renal failure [Not Recovered/Not Resolved]
  - Renal impairment [Not Recovered/Not Resolved]
